FAERS Safety Report 6918157-7 (Version None)
Quarter: 2010Q3

REPORT INFORMATION
  Report Type: 
  Country: None (occurrence: None)
  Receive Date: 20100806
  Receipt Date: 20100726
  Transmission Date: 20110219
  Serious: Yes (Hospitalization)
  Sender: FDA-Public Use
  Company Number: 230761J10USA

PATIENT
  Age: 51 Year
  Sex: Female
  Weight: 48 kg

DRUGS (7)
  1. REBIF [Suspect]
     Indication: MULTIPLE SCLEROSIS
     Dosage: 22 MCG, 3 IN 1 WK, SUBCUTANEOUS, 44 MCG, 3 IN 1 WK, SUBCUTANEOUS
     Route: 058
     Dates: end: 20100122
  2. REBIF [Suspect]
     Indication: MULTIPLE SCLEROSIS
     Dosage: 22 MCG, 3 IN 1 WK, SUBCUTANEOUS, 44 MCG, 3 IN 1 WK, SUBCUTANEOUS
     Route: 058
     Dates: start: 20091223
  3. VIOKASE 16 [Concomitant]
  4. INHALER (OTHER ANTI-ASTHMATICS, INHALANTS) [Concomitant]
  5. LACTULOSE [Concomitant]
  6. HYDROCODONE BITARTRATE [Concomitant]
  7. MUSCLE RELAXANT (MUSCLE RELAXANTS) [Concomitant]

REACTIONS (2)
  - LIVER FUNCTION TEST ABNORMAL [None]
  - PANCREATITIS ACUTE [None]
